FAERS Safety Report 9433690 (Version 2)
Quarter: 2013Q3

REPORT INFORMATION
  Report Type: Spontaneous
  Country: ES (occurrence: ES)
  Receive Date: 20130731
  Receipt Date: 20130802
  Transmission Date: 20140515
  Serious: No
  Sender: FDA-Public Use
  Company Number: ES-ROCHE-1254437

PATIENT
  Age: 64 Year
  Sex: Female
  Weight: 63.5 kg

DRUGS (10)
  1. TOCILIZUMAB [Suspect]
     Indication: RHEUMATOID ARTHRITIS
     Route: 042
     Dates: start: 20130220, end: 20130710
  2. PREDNISONE [Concomitant]
     Indication: ARTHRITIS
     Route: 048
     Dates: start: 2013
  3. NAPROXEN [Concomitant]
     Indication: ARTHRITIS
     Route: 048
     Dates: start: 2010
  4. RISEDRONATE [Concomitant]
     Indication: OSTEOPOROSIS
     Route: 048
     Dates: start: 2010
  5. NATECAL D [Concomitant]
     Indication: OSTEOPOROSIS
     Route: 048
     Dates: start: 2010
  6. PARACETAMOL [Concomitant]
     Indication: PAIN
     Route: 048
     Dates: start: 2003
  7. OMEPRAZOLE [Concomitant]
     Indication: PRODUCT USED FOR UNKNOWN INDICATION
     Route: 048
     Dates: start: 2003
  8. FLUOXETIN [Concomitant]
     Indication: DEPRESSION
     Route: 048
  9. TRANKIMAZIN [Concomitant]
     Indication: ANXIETY
     Route: 048
  10. IBISTACIN [Concomitant]
     Indication: PRURITUS
     Route: 048
     Dates: start: 20110603

REACTIONS (3)
  - Benign neoplasm [Recovered/Resolved]
  - Arthropathy [Recovered/Resolved]
  - Pyrexia [Recovered/Resolved]
